FAERS Safety Report 18050806 (Version 5)
Quarter: 2020Q4

REPORT INFORMATION
  Report Type: Spontaneous
  Country: US (occurrence: US)
  Receive Date: 20200721
  Receipt Date: 20201022
  Transmission Date: 20210113
  Serious: Yes (Other)
  Sender: FDA-Public Use
  Company Number: US-PFIZER INC-2020254337

PATIENT
  Age: 62 Year
  Sex: Male
  Weight: 82 kg

DRUGS (2)
  1. PREDNISONE. [Concomitant]
     Active Substance: PREDNISONE
     Dosage: 25 MG, DAILY
  2. METHOTREXATE SODIUM. [Suspect]
     Active Substance: METHOTREXATE SODIUM
     Indication: ACUTE FEBRILE NEUTROPHILIC DERMATOSIS
     Dosage: UNK
     Dates: end: 202006

REACTIONS (12)
  - White blood cell count decreased [Unknown]
  - Product use in unapproved indication [Unknown]
  - Arterial disorder [Unknown]
  - Pain [Unknown]
  - Drug tolerance [Unknown]
  - Inflammation [Unknown]
  - Blood potassium abnormal [Unknown]
  - Pneumonitis [Unknown]
  - Connective tissue disorder [Unknown]
  - Dyspnoea [Unknown]
  - Off label use [Unknown]
  - Rash [Unknown]
